FAERS Safety Report 15824678 (Version 3)
Quarter: 2019Q1

REPORT INFORMATION
  Report Type: Spontaneous
  Country: US (occurrence: US)
  Receive Date: 20190115
  Receipt Date: 20190307
  Transmission Date: 20190417
  Serious: Yes (Other)
  Sender: FDA-Public Use
  Company Number: US-LUPIN PHARMACEUTICALS INC.-2019-00127

PATIENT
  Age: 87 Year
  Sex: Male
  Weight: 63.49 kg

DRUGS (1)
  1. CEFDINIR CAPSULES USP, 300 MG [Suspect]
     Active Substance: CEFDINIR
     Indication: TOOTH INFECTION
     Dosage: 600 MG, BID
     Route: 048
     Dates: start: 20181229, end: 20190102

REACTIONS (5)
  - Nausea [Not Recovered/Not Resolved]
  - Restlessness [Not Recovered/Not Resolved]
  - Abdominal pain upper [Not Recovered/Not Resolved]
  - Malaise [Not Recovered/Not Resolved]
  - Feeling jittery [Not Recovered/Not Resolved]

NARRATIVE: CASE EVENT DATE: 20181231
